FAERS Safety Report 7541391-2 (Version None)
Quarter: 2011Q2

REPORT INFORMATION
  Report Type: 
  Country: None (occurrence: None)
  Receive Date: 20110613
  Receipt Date: 20110603
  Transmission Date: 20111010
  Serious: Yes (Hospitalization)
  Sender: FDA-Public Use
  Company Number: US-BIOGENIDEC-2011BI020731

PATIENT
  Age: 56 Year
  Sex: Male

DRUGS (2)
  1. AVONEX [Suspect]
     Indication: MULTIPLE SCLEROSIS
     Route: 030
     Dates: start: 20020820
  2. AVONEX [Suspect]
     Route: 030
     Dates: start: 19970601, end: 20020718

REACTIONS (2)
  - HYPERTENSION [None]
  - INTERVERTEBRAL DISC DISORDER [None]
